FAERS Safety Report 15241818 (Version 1)
Quarter: 2018Q3

REPORT INFORMATION
  Report Type: Spontaneous
  Country: US (occurrence: US)
  Receive Date: 20180712
  Receipt Date: 20180712
  Transmission Date: 20181010
  Serious: No
  Sender: FDA-Public Use
  Company Number: None

PATIENT
  Sex: Female
  Weight: 68.95 kg

DRUGS (5)
  1. BENLYSTA [Suspect]
     Active Substance: BELIMUMAB
     Indication: MUSCULOSKELETAL DISORDER
     Route: 058
     Dates: start: 201802
  2. BENLYSTA [Suspect]
     Active Substance: BELIMUMAB
     Indication: OSTEOARTHRITIS
     Route: 058
     Dates: start: 201802
  3. BENLYSTA [Suspect]
     Active Substance: BELIMUMAB
     Indication: SPINAL COLUMN STENOSIS
     Route: 058
     Dates: start: 201802
  4. BENLYSTA [Suspect]
     Active Substance: BELIMUMAB
     Indication: SENILE OSTEOPOROSIS
     Route: 058
     Dates: start: 201802
  5. BENLYSTA [Suspect]
     Active Substance: BELIMUMAB
     Indication: SYSTEMIC LUPUS ERYTHEMATOSUS
     Route: 058
     Dates: start: 201802

REACTIONS (2)
  - Memory impairment [None]
  - Product storage error [None]
